FAERS Safety Report 9852367 (Version 2)
Quarter: 2014Q1

REPORT INFORMATION
  Report Type: Spontaneous
  Country: US (occurrence: None)
  Receive Date: 20140127
  Receipt Date: 20140205
  Transmission Date: 20141002
  Serious: Yes (Other)
  Sender: FDA-Public Use
  Company Number: 2014AP000461

PATIENT
  Age: 7 Year
  Sex: Male
  Weight: 44.09 kg

DRUGS (5)
  1. FERRIPROX [Suspect]
     Indication: HAEMOCHROMATOSIS
     Route: 048
     Dates: start: 20131108, end: 20140107
  2. FERRIPROX [Suspect]
     Indication: THALASSAEMIA
     Route: 048
     Dates: start: 20131108, end: 20140107
  3. DESFERAL [Concomitant]
  4. FLONASE [Concomitant]
  5. LORATADIN [Concomitant]

REACTIONS (3)
  - Agranulocytosis [None]
  - White blood cell count decreased [None]
  - Neutrophil count decreased [None]
